FAERS Safety Report 7347116-8 (Version None)
Quarter: 2011Q1

REPORT INFORMATION
  Report Type: 
  Country: None (occurrence: None)
  Receive Date: 20110311
  Receipt Date: 20110302
  Transmission Date: 20110831
  Serious: Yes (Hospitalization)
  Sender: FDA-Public Use
  Company Number: JP-NOVOPROD-317631

PATIENT
  Age: 13 Year
  Sex: Male
  Weight: 31 kg

DRUGS (7)
  1. PANALDINE [Concomitant]
     Indication: PRODUCT USED FOR UNKNOWN INDICATION
     Dosage: 80 MG, QD
     Route: 048
     Dates: start: 19971001
  2. NORDITROPIN NORDIFLEX CHU [Suspect]
     Indication: GROWTH HORMONE DEFICIENCY
     Dosage: 0.45-0.8 MG, UNK
     Route: 058
     Dates: start: 20060808, end: 20101031
  3. DIGOSIN [Concomitant]
     Indication: PRODUCT USED FOR UNKNOWN INDICATION
     Dosage: 0.12 MG, QD
     Route: 048
  4. LEUPLIN [Concomitant]
     Indication: PRECOCIOUS PUBERTY
     Dosage: 0.5 MG, QD
     Route: 058
     Dates: start: 20100806, end: 20101031
  5. RENIVACE [Concomitant]
     Indication: PRODUCT USED FOR UNKNOWN INDICATION
     Dosage: 2.2 MG, QD
     Route: 048
     Dates: start: 19971001
  6. WARFARIN K [Concomitant]
     Indication: PRODUCT USED FOR UNKNOWN INDICATION
     Dosage: 1.6 MG, QD
     Route: 048
     Dates: start: 19971001
  7. TAMBOCOR [Concomitant]
     Indication: PRODUCT USED FOR UNKNOWN INDICATION
     Dosage: 120 MG, QD
     Route: 048

REACTIONS (6)
  - GASTROINTESTINAL OEDEMA [None]
  - DIARRHOEA [None]
  - PROTEIN-LOSING GASTROENTEROPATHY [None]
  - GASTRITIS ATROPHIC [None]
  - GASTROINTESTINAL INFLAMMATION [None]
  - VENOUS PRESSURE INCREASED [None]
